FAERS Safety Report 9470215 (Version 1)
Quarter: 2013Q3

REPORT INFORMATION
  Report Type: Spontaneous
  Country: US (occurrence: US)
  Receive Date: 20130822
  Receipt Date: 20130822
  Transmission Date: 20140515
  Serious: No
  Sender: FDA-Public Use
  Company Number: US-BAYER-2013-101185

PATIENT
  Sex: 0

DRUGS (3)
  1. ALEVE CAPLET [Suspect]
     Indication: MIGRAINE
  2. EXCEDRIN MIGRAINE [Concomitant]
     Indication: MIGRAINE
  3. IBUPROFEN [Concomitant]
     Indication: MIGRAINE

REACTIONS (1)
  - Drug ineffective [None]
